FAERS Safety Report 5881355-8 (Version None)
Quarter: 2008Q3

REPORT INFORMATION
  Report Type: 
  Country: None (occurrence: None)
  Receive Date: 20080912
  Receipt Date: 20080626
  Transmission Date: 20090109
  Serious: No
  Sender: FDA-Public Use
  Company Number: US-ABBOTT-08P-163-0459729-00

PATIENT
  Sex: Female
  Weight: 102.15 kg

DRUGS (6)
  1. HUMIRA [Suspect]
     Indication: PSORIASIS
     Route: 058
     Dates: start: 20080529
  2. METHOTREXATE [Concomitant]
     Indication: PSORIASIS
     Dosage: 6 PILLS PER WEEK
     Route: 048
  3. METFORMIN HCL [Concomitant]
     Indication: DIABETES MELLITUS
     Route: 048
  4. SIMVASTATIN [Concomitant]
     Indication: BLOOD CHOLESTEROL
     Route: 048
  5. ESOMEPRAZOLE MAGNESIUM [Concomitant]
     Indication: GASTROOESOPHAGEAL REFLUX DISEASE
     Route: 048
  6. NAPROXEN SODIUM [Concomitant]
     Indication: ARTHRALGIA
     Route: 048

REACTIONS (7)
  - DRUG INEFFECTIVE [None]
  - GAIT DISTURBANCE [None]
  - IMPAIRED HEALING [None]
  - PAIN IN EXTREMITY [None]
  - PSORIASIS [None]
  - SKIN FISSURES [None]
  - SKIN HAEMORRHAGE [None]
